FAERS Safety Report 20393862 (Version 1)
Quarter: 2022Q1

REPORT INFORMATION
  Report Type: Spontaneous
  Country: DE (occurrence: DE)
  Receive Date: 20220129
  Receipt Date: 20220129
  Transmission Date: 20220423
  Serious: Yes (Other)
  Sender: FDA-Public Use
  Company Number: DE-TEVA-2020-DE-1190549

PATIENT
  Age: 55 Year
  Sex: Female

DRUGS (25)
  1. VALSARTAN [Suspect]
     Active Substance: VALSARTAN
     Dosage: 40 MILLIGRAM DAILY; 1-0-0
     Route: 048
     Dates: start: 20171004
  2. VALSARTAN [Suspect]
     Active Substance: VALSARTAN
     Route: 065
  3. VALSARTAN [Suspect]
     Active Substance: VALSARTAN
     Route: 065
  4. VALSARTAN [Suspect]
     Active Substance: VALSARTAN
     Route: 065
  5. L-Thyroxin 25 microgram [Concomitant]
     Dosage: 25 MICROGRAM DAILY; 1-0-0
     Route: 048
  6. AMLODIPINE BESYLATE [Concomitant]
     Active Substance: AMLODIPINE BESYLATE
     Dosage: 10 MILLIGRAM DAILY; 1-0-1
     Route: 048
  7. Bisoprolol 5 mg 1A Pharma [Concomitant]
     Dosage: 5 MILLIGRAM DAILY; 1-0-0
     Route: 048
  8. LEVOTHYROXINE SODIUM [Concomitant]
     Active Substance: LEVOTHYROXINE SODIUM
     Route: 065
  9. Bisoprolol 5 1A Pharma [Concomitant]
     Route: 065
  10. Ibu 600 1A Pharma [Concomitant]
     Route: 065
  11. CANDESARTAN [Concomitant]
     Active Substance: CANDESARTAN
     Dosage: DOSAGE 1-0.0.0
     Route: 065
  12. VALSARTAN [Concomitant]
     Active Substance: VALSARTAN
     Route: 065
  13. Bisoprolol 5 1A Pharma [Concomitant]
     Dosage: DOSAGE 1-0-0-0
     Route: 065
  14. Zolpidem AbZ [Concomitant]
     Route: 065
  15. L-Thyroxin 25 microgram Henning [Concomitant]
     Route: 065
  16. Lercanidipin Omnlapharm 10 mg [Concomitant]
     Route: 065
  17. Trimipramin Aristo 40 mg/ml [Concomitant]
     Route: 065
  18. DICLOFENAC SODIUM [Concomitant]
     Active Substance: DICLOFENAC SODIUM
  19. Lercanidipin Omnipharm 10 mg [Concomitant]
     Route: 065
  20. Bisoprolol 5 1A Pharma [Concomitant]
  21. Valsartan Dura 40 mg [Concomitant]
     Route: 065
  22. Quetiapin 1A Pharma 25 mg [Concomitant]
     Route: 065
  23. VALSARTAN [Concomitant]
     Active Substance: VALSARTAN
     Route: 065
  24. PANTOPRAZOLE SODIUM [Concomitant]
     Active Substance: PANTOPRAZOLE SODIUM
     Route: 065
  25. Ramipril 1 A Pharma [Concomitant]
     Route: 065

REACTIONS (11)
  - Depression [Not Recovered/Not Resolved]
  - Fear of disease [Not Recovered/Not Resolved]
  - Product impurity [Not Recovered/Not Resolved]
  - Emotional distress [Not Recovered/Not Resolved]
  - Impaired quality of life [Not Recovered/Not Resolved]
  - Anxiety [Not Recovered/Not Resolved]
  - Sleep disorder [Not Recovered/Not Resolved]
  - Headache [Not Recovered/Not Resolved]
  - Hypersensitivity [Not Recovered/Not Resolved]
  - Middle insomnia [Not Recovered/Not Resolved]
  - Merycism [Not Recovered/Not Resolved]

NARRATIVE: CASE EVENT DATE: 20190101
